FAERS Safety Report 6158270-8 (Version None)
Quarter: 2009Q2

REPORT INFORMATION
  Report Type: 
  Country: None (occurrence: None)
  Receive Date: 20090417
  Receipt Date: 20090415
  Transmission Date: 20091009
  Serious: Yes (Life-Threatening, Hospitalization)
  Sender: FDA-Public Use
  Company Number: FR-ASTRAZENECA-2009CG00741

PATIENT
  Age: 821 Month
  Sex: Male

DRUGS (7)
  1. NEXIUM [Suspect]
     Route: 048
     Dates: start: 20090201, end: 20090308
  2. MABTHERA [Suspect]
     Indication: WALDENSTROM'S MACROGLOBULINAEMIA
     Dosage: 350 MG/M2 ONCE/SINGLE ADMINISTRATION
     Route: 042
     Dates: start: 20080901, end: 20080901
  3. PLAVIX [Suspect]
     Route: 048
     Dates: start: 20081001, end: 20090308
  4. PERISTALTINE [Suspect]
     Indication: GASTROINTESTINAL MOTILITY DISORDER
     Route: 048
     Dates: start: 20090201, end: 20090308
  5. KARDEGIC [Concomitant]
     Dates: start: 20081001
  6. TAHOR [Concomitant]
     Dates: start: 20081001
  7. DETENSIEL [Concomitant]
     Dates: start: 20081001

REACTIONS (2)
  - AGRANULOCYTOSIS [None]
  - SEPSIS [None]
